FAERS Safety Report 5593643-3 (Version None)
Quarter: 2008Q1

REPORT INFORMATION
  Report Type: 
  Country: None (occurrence: None)
  Receive Date: 20080116
  Receipt Date: 20080107
  Transmission Date: 20080703
  Serious: Yes (Hospitalization)
  Sender: FDA-Public Use
  Company Number: US-KINGPHARMUSA00001-K200800018

PATIENT

DRUGS (11)
  1. ALTACE [Suspect]
     Dosage: 1 U, QD
     Route: 048
  2. SECTRAL [Suspect]
     Dosage: 1 U, QD
     Route: 048
  3. PLAVIX [Suspect]
     Indication: MYOCARDIAL INFARCTION
     Dosage: 75 MG, QD
     Route: 048
  4. PLAVIX [Suspect]
     Indication: ANGIOPLASTY
  5. IZILOX [Suspect]
     Indication: BRONCHITIS
     Dosage: 400 MG, QD
     Route: 048
     Dates: start: 20070724, end: 20070730
  6. CITALOPRAM [Suspect]
     Indication: MAJOR DEPRESSION
     Dosage: 20 MG, QD
     Route: 048
  7. MEMANTINE HCL [Suspect]
     Indication: DEMENTIA ALZHEIMER'S TYPE
     Dosage: 20 MG, QD
     Route: 048
  8. ADANCOR [Suspect]
     Dosage: 2 U, QD
     Route: 048
  9. PRAVASTATINE /00880401/ [Suspect]
     Dosage: 1 U, QD
     Route: 048
  10. PULMICORT [Suspect]
     Dosage: UNK, UNK
     Route: 045
     Dates: start: 20070724, end: 20070730
  11. CALCIPARINE [Concomitant]
     Dosage: 3 U, UNK
     Route: 058

REACTIONS (2)
  - LOSS OF CONSCIOUSNESS [None]
  - MALAISE [None]
